FAERS Safety Report 5418357-1 (Version None)
Quarter: 2007Q3

REPORT INFORMATION
  Report Type: 
  Country: None (occurrence: None)
  Receive Date: 20070817
  Receipt Date: 20070806
  Transmission Date: 20080115
  Serious: Yes (Hospitalization)
  Sender: FDA-Public Use
  Company Number: GB-JNJFOC-20070801884

PATIENT
  Sex: Male

DRUGS (4)
  1. DAKTARIN [Suspect]
     Route: 002
     Dates: start: 20070712, end: 20070723
  2. DAKTARIN [Suspect]
     Indication: DRUG USE FOR UNKNOWN INDICATION
     Route: 002
     Dates: start: 20070712, end: 20070723
  3. AMOXICILLIN + CLAVULANATE POTASSIUM [Interacting]
     Indication: DRUG USE FOR UNKNOWN INDICATION
     Route: 048
     Dates: start: 20070723, end: 20070729
  4. WARFARIN [Interacting]
     Indication: DRUG USE FOR UNKNOWN INDICATION
     Route: 048

REACTIONS (2)
  - DRUG INTERACTION [None]
  - INTERNATIONAL NORMALISED RATIO INCREASED [None]
